FAERS Safety Report 12967814 (Version 4)
Quarter: 2018Q1

REPORT INFORMATION
  Report Type: Spontaneous
  Country: US (occurrence: US)
  Receive Date: 20161123
  Receipt Date: 20180326
  Transmission Date: 20180508
  Serious: No
  Sender: FDA-Public Use
  Company Number: US-PFIZER INC-2016538963

PATIENT
  Age: 55 Year
  Sex: Female

DRUGS (1)
  1. RELPAX [Suspect]
     Active Substance: ELETRIPTAN HYDROBROMIDE
     Indication: MIGRAINE
     Dosage: 40 MG, UNK

REACTIONS (3)
  - Drug effect incomplete [Not Recovered/Not Resolved]
  - Intentional product misuse [Unknown]
  - Mental disorder [Not Recovered/Not Resolved]
